FAERS Safety Report 6454405-8 (Version None)
Quarter: 2009Q4

REPORT INFORMATION
  Report Type: 
  Country: None (occurrence: None)
  Receive Date: 20091124
  Receipt Date: 20091111
  Transmission Date: 20100525
  Serious: Yes (Other)
  Sender: FDA-Public Use
  Company Number: PHHY2009CA49896

PATIENT
  Sex: Female

DRUGS (2)
  1. TEGRETOL [Suspect]
     Indication: EPILEPSY
     Dosage: 800 MG, BID
  2. TEGRETOL [Suspect]
     Dosage: 500 MG, BID

REACTIONS (4)
  - CONTUSION [None]
  - CONVULSION [None]
  - FEELING ABNORMAL [None]
  - WHITE BLOOD CELL COUNT DECREASED [None]
